FAERS Safety Report 20559086 (Version 5)
Quarter: 2022Q2

REPORT INFORMATION
  Report Type: Report from Study
  Country: KR (occurrence: None)
  Receive Date: 20220307
  Receipt Date: 20220518
  Transmission Date: 20220721
  Serious: Yes (Hospitalization)
  Sender: FDA-Public Use
  Company Number: KR-Eisai Medical Research-EC-2022-109933

PATIENT
  Age: 74 Year
  Sex: Male
  Weight: 46.1 kg

DRUGS (20)
  1. LENVATINIB [Suspect]
     Active Substance: LENVATINIB
     Indication: Squamous cell carcinoma of head and neck
     Route: 048
     Dates: start: 20220207, end: 20220220
  2. PEMBROLIZUMAB [Suspect]
     Active Substance: PEMBROLIZUMAB
     Indication: Squamous cell carcinoma of head and neck
     Route: 041
     Dates: start: 20220207, end: 20220207
  3. EZEROVA [Concomitant]
     Dates: start: 200101
  4. HYPERSTA [Concomitant]
     Dates: start: 200101
  5. TERRAMYCIN OPHTHALMIC [Concomitant]
     Dates: start: 20210117
  6. ENCOVER [Concomitant]
     Dates: start: 20210527
  7. PLAVIX [Concomitant]
     Active Substance: CLOPIDOGREL BISULFATE
     Dates: start: 20210714
  8. XARELTO [Concomitant]
     Active Substance: RIVAROXABAN
     Dates: start: 20210714
  9. ENTELON [Concomitant]
     Dates: start: 20210729
  10. MEDIAVEN L [Concomitant]
     Dates: start: 20210729
  11. K CAB [Concomitant]
     Dates: start: 20210729
  12. ULTRACET [Concomitant]
     Active Substance: ACETAMINOPHEN\TRAMADOL HYDROCHLORIDE
     Dates: start: 20210830
  13. MAGNESIUM HYDROXIDE [Concomitant]
     Active Substance: MAGNESIUM HYDROXIDE
     Dates: start: 20211007
  14. GASMOTIN [MOSAPRIDE CITRATE] [Concomitant]
     Dates: start: 20211007
  15. DUPHALAC [Concomitant]
     Active Substance: LACTULOSE
     Dates: start: 20211007
  16. PRUCALOPRIDE SUCCINATE [Concomitant]
     Active Substance: PRUCALOPRIDE SUCCINATE
     Dates: start: 20211007
  17. DULCOLAX (BISACODYL) [Concomitant]
     Active Substance: BISACODYL
     Dates: start: 20211012
  18. MEGACE F [Concomitant]
     Dates: start: 20211025
  19. BOLGRE [Concomitant]
     Dates: start: 20211108
  20. OXYCODONE HYDROCHLORIDE [Concomitant]
     Active Substance: OXYCODONE HYDROCHLORIDE
     Dates: start: 20220207, end: 20220308

REACTIONS (1)
  - Dehydration [Recovered/Resolved]

NARRATIVE: CASE EVENT DATE: 20220221
